FAERS Safety Report 14479737 (Version 6)
Quarter: 2018Q1

REPORT INFORMATION
  Report Type: Report from Study
  Country: None (occurrence: GB)
  Receive Date: 20180202
  Receipt Date: 20180329
  Transmission Date: 20180509
  Serious: Yes (Hospitalization, Other)
  Sender: FDA-Public Use
  Company Number: GB-ABBVIE-18K-167-2243657-00

PATIENT
  Age: 46 Year
  Sex: Male

DRUGS (2)
  1. HUMIRA [Suspect]
     Active Substance: ADALIMUMAB
     Indication: PSORIATIC ARTHROPATHY
     Route: 058
     Dates: start: 20180206, end: 20180206
  2. HUMIRA [Suspect]
     Active Substance: ADALIMUMAB
     Indication: CROHN^S DISEASE
     Route: 058
     Dates: start: 20180122, end: 2018

REACTIONS (16)
  - Visual impairment [Recovered/Resolved]
  - Head discomfort [Unknown]
  - Paraesthesia [Not Recovered/Not Resolved]
  - Erythema [Unknown]
  - Eye swelling [Unknown]
  - Fatigue [Unknown]
  - Malaise [Unknown]
  - Blindness [Not Recovered/Not Resolved]
  - Abdominal pain upper [Unknown]
  - Anaphylactic shock [Not Recovered/Not Resolved]
  - Balance disorder [Unknown]
  - Drug hypersensitivity [Unknown]
  - Chest pain [Unknown]
  - Peripheral swelling [Not Recovered/Not Resolved]
  - Disturbance in attention [Unknown]
  - Epilepsy [Unknown]

NARRATIVE: CASE EVENT DATE: 2018
